FAERS Safety Report 6889839-0 (Version None)
Quarter: 2010Q3

REPORT INFORMATION
  Report Type: 
  Country: None (occurrence: None)
  Receive Date: 20100730
  Receipt Date: 20080529
  Transmission Date: 20110219
  Serious: No
  Sender: FDA-Public Use
  Company Number: US-PFIZER INC-2008045893

PATIENT
  Sex: Female
  Weight: 72.57 kg

DRUGS (6)
  1. LIPITOR [Suspect]
     Indication: BLOOD CHOLESTEROL
     Dates: end: 20080301
  2. ACIPHEX [Concomitant]
     Indication: HIATUS HERNIA
  3. ALLEGRA D 24 HOUR [Concomitant]
     Indication: SINUS DISORDER
  4. PREMARIN [Concomitant]
  5. BENADRYL [Concomitant]
  6. HYDROMORPHONE [Concomitant]

REACTIONS (2)
  - DEPRESSION [None]
  - MEMORY IMPAIRMENT [None]
